FAERS Safety Report 11460972 (Version 1)
Quarter: 2015Q3

REPORT INFORMATION
  Report Type: Spontaneous
  Country: US (occurrence: US)
  Receive Date: 20150904
  Receipt Date: 20150904
  Transmission Date: 20151125
  Serious: Yes (Other)
  Sender: FDA-Public Use
  Company Number: US-TAKEDA-2014TUS009374

PATIENT

DRUGS (6)
  1. ACTOS [Suspect]
     Active Substance: PIOGLITAZONE HYDROCHLORIDE
     Indication: TYPE 2 DIABETES MELLITUS
     Dosage: UNK
     Route: 048
     Dates: start: 2006, end: 2009
  2. GLUCOTROL [Concomitant]
     Active Substance: GLIPIZIDE
     Dosage: 2.5 MG, UNK
  3. GLUCOPHAGE [Concomitant]
     Active Substance: METFORMIN HYDROCHLORIDE
     Dosage: DESCRIPTION: GENERIC VERSION - METFORMIN
  4. INSULIN                            /01223401/ [Concomitant]
     Indication: DIABETES MELLITUS
     Dosage: DESCRIPTION: INSULIN PEN
  5. METFORMIN [Concomitant]
     Active Substance: METFORMIN HYDROCHLORIDE
     Dosage: 1000 MG, BID
  6. JANUVIA [Concomitant]
     Active Substance: SITAGLIPTIN PHOSPHATE
     Dosage: SAMPLE PACKS, UNK
     Dates: start: 2009

REACTIONS (1)
  - Bladder cancer [Unknown]

NARRATIVE: CASE EVENT DATE: 2010
